FAERS Safety Report 8579045-6 (Version None)
Quarter: 2012Q3

REPORT INFORMATION
  Report Type: 
  Country: None (occurrence: None)
  Receive Date: 20120808
  Receipt Date: 20120801
  Transmission Date: 20120928
  Serious: Yes (Hospitalization)
  Sender: FDA-Public Use
  Company Number: HN-ROCHE-1076507

PATIENT
  Sex: Female

DRUGS (3)
  1. BONIVA [Suspect]
     Indication: OSTEOPOROSIS
     Route: 048
     Dates: start: 20120309
  2. IRBESARTAN [Concomitant]
     Indication: CARDIAC DISORDER
  3. HYDROCHLOROTHIAZIDE [Concomitant]
     Indication: CARDIAC DISORDER

REACTIONS (1)
  - CEREBROVASCULAR ACCIDENT [None]
